FAERS Safety Report 12285457 (Version 1)
Quarter: 2016Q2

REPORT INFORMATION
  Report Type: Other
  Country: GB (occurrence: GB)
  Receive Date: 20160420
  Receipt Date: 20160420
  Transmission Date: 20160815
  Serious: Yes (Hospitalization, Other)
  Sender: FDA-Public Use
  Company Number: GB-AUROBINDO-AUR-APL-2012-04004

PATIENT
  Age: 81 Year
  Sex: Male
  Weight: 62.9 kg

DRUGS (2)
  1. GABAPENTIN. [Suspect]
     Active Substance: GABAPENTIN
     Indication: DIABETIC NEUROPATHY
     Dosage: 100 MG,3 TIMES A DAY,
     Route: 048
     Dates: start: 20110630, end: 20110630
  2. GABAPENTIN CAPSULES 400 MG [Suspect]
     Active Substance: GABAPENTIN
     Indication: PRODUCT USED FOR UNKNOWN INDICATION
     Dosage: 400 MG,UNK,
     Route: 048

REACTIONS (12)
  - Hypotension [Recovered/Resolved]
  - Thinking abnormal [Not Recovered/Not Resolved]
  - Victim of crime [Not Recovered/Not Resolved]
  - Vomiting [Recovered/Resolved]
  - Pyrexia [Recovered/Resolved]
  - Fatigue [Recovered/Resolved]
  - Speech disorder [Unknown]
  - Headache [Recovered/Resolved]
  - Amnesia [Unknown]
  - Mental impairment [Unknown]
  - Bradycardia [Recovered/Resolved]
  - Confusional state [Recovered/Resolved]

NARRATIVE: CASE EVENT DATE: 20110630
